FAERS Safety Report 7929209-7 (Version None)
Quarter: 2011Q4

REPORT INFORMATION
  Report Type: 
  Country: None (occurrence: None)
  Receive Date: 20111120
  Receipt Date: 20111107
  Transmission Date: 20120403
  Serious: Yes (Other)
  Sender: FDA-Public Use
  Company Number: US-ELI_LILLY_AND_COMPANY-US201012004458

PATIENT
  Sex: Female
  Weight: 45 kg

DRUGS (12)
  1. FORTEO [Suspect]
     Indication: OSTEOPOROSIS
     Dosage: 20 UG, DAILY (1/D)
     Route: 065
     Dates: start: 20101201
  2. FORTEO [Suspect]
     Dosage: 20 UG, DAILY (1/D)
     Route: 065
  3. VITAMIN D [Concomitant]
  4. CLIMARA [Concomitant]
  5. FORTEO [Suspect]
     Dosage: 20 UG, DAILY (1/D)
     Route: 065
  6. FORTEO [Suspect]
     Dosage: 20 UG, QD
     Route: 065
     Dates: end: 20111028
  7. ASPIRIN [Concomitant]
  8. LIDODERM [Concomitant]
  9. FORTEO [Suspect]
     Dosage: 20 UG, QD
     Route: 065
  10. FORTEO [Suspect]
     Dosage: 20 UG, QD
     Route: 065
  11. MOBIC [Concomitant]
  12. DUONEB [Concomitant]

REACTIONS (37)
  - FATIGUE [None]
  - VASCULAR INJURY [None]
  - NERVE INJURY [None]
  - MUSCLE FATIGUE [None]
  - FALL [None]
  - ASTHENIA [None]
  - MUSCLE SPASMS [None]
  - FLATULENCE [None]
  - INJECTION SITE HAEMATOMA [None]
  - VISUAL ACUITY REDUCED [None]
  - CONTUSION [None]
  - PYREXIA [None]
  - COUGH [None]
  - DRUG DOSE OMISSION [None]
  - PNEUMONIA [None]
  - INJECTION SITE HAEMORRHAGE [None]
  - SPINAL FRACTURE [None]
  - LETHARGY [None]
  - FEELING ABNORMAL [None]
  - HYPERSENSITIVITY [None]
  - CONSTIPATION [None]
  - HAEMATURIA [None]
  - MALAISE [None]
  - OEDEMA PERIPHERAL [None]
  - RENAL DISORDER [None]
  - DYSURIA [None]
  - INJECTION SITE PAIN [None]
  - DIZZINESS [None]
  - NAUSEA [None]
  - MYALGIA [None]
  - OLIGURIA [None]
  - VOMITING PROJECTILE [None]
  - PAIN [None]
  - ARTHRALGIA [None]
  - MUSCULAR WEAKNESS [None]
  - PAIN IN EXTREMITY [None]
  - RIB FRACTURE [None]
